FAERS Safety Report 18485840 (Version 1)
Quarter: 2020Q4

REPORT INFORMATION
  Report Type: Report from Study
  Country: None (occurrence: BE)
  Receive Date: 20201110
  Receipt Date: 20201110
  Transmission Date: 20210114
  Serious: Yes (Death)
  Sender: FDA-Public Use
  Company Number: BE-ABBVIE-19K-013-2976174-00

PATIENT
  Age: 84 Year
  Sex: Male
  Weight: 70 kg

DRUGS (8)
  1. STALEVO [Concomitant]
     Active Substance: CARBIDOPA\ENTACAPONE\LEVODOPA
     Dosage: FORM STRENGTH: 200MG/50MG/200MG; RESCUE MEDICATION
  2. TRAZODONE [Concomitant]
     Active Substance: TRAZODONE HYDROCHLORIDE
     Indication: PRODUCT USED FOR UNKNOWN INDICATION
  3. DUODOPA [Suspect]
     Active Substance: CARBIDOPA\LEVODOPA
     Indication: PARKINSON^S DISEASE
     Dosage: MD=7ML, CD=3.8ML/HR DURING 16HRS, ED=2ML
     Route: 050
     Dates: start: 20141020, end: 20141024
  4. DUODOPA [Suspect]
     Active Substance: CARBIDOPA\LEVODOPA
     Dosage: DOSES CONTINUOUSLY MONITORED AND ADAPTED
     Route: 050
     Dates: start: 20141024, end: 20150203
  5. STALEVO 150 [Concomitant]
     Indication: PARKINSON^S DISEASE
     Dosage: FORM STRENGTH: 150MG/37.5MG/200MG
     Route: 048
  6. STALEVO 150 [Concomitant]
     Dosage: FORM STRENGTH: 150MG/37.5MG/200MG; RESCUE MEDICATION
  7. STALEVO [Concomitant]
     Active Substance: CARBIDOPA\ENTACAPONE\LEVODOPA
     Indication: PARKINSON^S DISEASE
     Dosage: FORM STRENGTH: 200MG/50MG/200MG
     Route: 048
  8. DUODOPA [Suspect]
     Active Substance: CARBIDOPA\LEVODOPA
     Dosage: MD=9ML, CD=3.9ML/HR DURING 16HRS, ED=2ML
     Route: 050
     Dates: start: 20150203

REACTIONS (7)
  - Death [Fatal]
  - Parkinson^s disease [Unknown]
  - Hallucination [Unknown]
  - Fall [Recovered/Resolved]
  - Cognitive disorder [Unknown]
  - Confusional state [Not Recovered/Not Resolved]
  - Freezing phenomenon [Unknown]
